FAERS Safety Report 17222117 (Version 1)
Quarter: 2019Q4

REPORT INFORMATION
  Report Type: Spontaneous
  Country: US (occurrence: US)
  Receive Date: 20191209
  Receipt Date: 20191209
  Transmission Date: 20200122
  Serious: No
  Sender: FDA-Public Use
  Company Number: None

PATIENT
  Age: 66 Year
  Sex: Male
  Weight: 86.18 kg

DRUGS (1)
  1. OMEPRAZOLE DR CAPS - 20MG [Suspect]
     Active Substance: OMEPRAZOLE
     Dosage: ?          OTHER DOSE:1 AT BEDTIME; QHS. BEDTIME?

REACTIONS (3)
  - Product size issue [None]
  - Gastrooesophageal reflux disease [None]
  - Condition aggravated [None]

NARRATIVE: CASE EVENT DATE: 20191121
